FAERS Safety Report 7991418-9 (Version None)
Quarter: 2011Q4

REPORT INFORMATION
  Report Type: 
  Country: None (occurrence: None)
  Receive Date: 20111219
  Receipt Date: 20111207
  Transmission Date: 20120403
  Serious: Yes (Other)
  Sender: FDA-Public Use
  Company Number: CA-JNJFOC-20111110201

PATIENT
  Sex: Male
  Weight: 76 kg

DRUGS (4)
  1. ASPIRIN [Concomitant]
     Route: 065
  2. ALTACE [Concomitant]
     Route: 065
  3. REMICADE [Suspect]
     Indication: CROHN'S DISEASE
     Route: 042
     Dates: start: 20110401
  4. METFORMIN HCL [Concomitant]
     Route: 065

REACTIONS (1)
  - SKIN DISORDER [None]
